FAERS Safety Report 5878781-X (Version None)
Quarter: 2008Q3

REPORT INFORMATION
  Report Type: 
  Country: None (occurrence: None)
  Receive Date: 20080910
  Receipt Date: 20080828
  Transmission Date: 20090109
  Serious: Yes (Other)
  Sender: FDA-Public Use
  Company Number: 2008BI022335

PATIENT
  Age: 48 Year
  Sex: Male
  Weight: 83.9154 kg

DRUGS (2)
  1. AVONEX [Suspect]
     Dosage: QW; IM, 30 UG; QW; IM
     Route: 030
     Dates: start: 19960101, end: 20030101
  2. AVONEX [Suspect]
     Dosage: QW; IM, 30 UG; QW; IM
     Route: 030
     Dates: start: 20030101

REACTIONS (2)
  - BONE NEOPLASM MALIGNANT [None]
  - MULTIPLE SCLEROSIS RELAPSE [None]
